FAERS Safety Report 7128532-6 (Version None)
Quarter: 2010Q4

REPORT INFORMATION
  Report Type: 
  Country: None (occurrence: None)
  Receive Date: 20101130
  Receipt Date: 20101119
  Transmission Date: 20110411
  Serious: Yes (Other)
  Sender: FDA-Public Use
  Company Number: US-JNJFOC-20101107536

PATIENT
  Sex: Female
  Weight: 78.47 kg

DRUGS (5)
  1. DURAGESIC-100 [Suspect]
     Indication: BACK PAIN
     Dosage: NDC 50458-094-05
     Route: 062
  2. DURAGESIC-100 [Suspect]
     Indication: PRODUCT USED FOR UNKNOWN INDICATION
     Route: 062
  3. PAIN MEDICATION NOS [Concomitant]
     Indication: PAIN
     Route: 065
  4. ANTIDEPRESSANT NOS [Concomitant]
     Indication: DEPRESSION
     Route: 065
  5. SLEEP MEDICATION NOS [Concomitant]
     Indication: SLEEP DISORDER
     Route: 065

REACTIONS (7)
  - HIP FRACTURE [None]
  - HYPOPHAGIA [None]
  - MALAISE [None]
  - MENOPAUSE [None]
  - NAUSEA [None]
  - PAIN [None]
  - THERAPEUTIC RESPONSE DECREASED [None]
